FAERS Safety Report 8163207-6 (Version None)
Quarter: 2012Q1

REPORT INFORMATION
  Report Type: 
  Country: None (occurrence: None)
  Receive Date: 20120224
  Receipt Date: 20110725
  Transmission Date: 20120608
  Serious: No
  Sender: FDA-Public Use
  Company Number: US-PFIZER INC-K201100880

PATIENT
  Age: 55 Year
  Sex: Female
  Weight: 52.154 kg

DRUGS (4)
  1. ZYRTEC [Concomitant]
     Indication: HYPERSENSITIVITY
     Dosage: UNK
  2. GUAIFENESIN [Concomitant]
     Dosage: UNK
  3. SINGULAIR [Concomitant]
     Dosage: UNK
  4. FLECTOR [Suspect]
     Indication: NECK PAIN
     Dosage: UNK PATCH, UNK
     Route: 061
     Dates: start: 20110725, end: 20110725

REACTIONS (4)
  - HYPERSENSITIVITY [None]
  - SNEEZING [None]
  - RHINORRHOEA [None]
  - LACRIMATION INCREASED [None]
